FAERS Safety Report 4477423-8 (Version None)
Quarter: 2004Q4

REPORT INFORMATION
  Report Type: 
  Country: None (occurrence: None)
  Receive Date: 20041013
  Receipt Date: 20040930
  Transmission Date: 20050328
  Serious: Yes (Disabling)
  Sender: FDA-Public Use
  Company Number: K200401488

PATIENT
  Age: 57 Year
  Sex: Female
  Weight: 63 kg

DRUGS (1)
  1. PREFEST (ESTRADIOL, NORGESTIMATE) TABLET, 1 TABLET [Suspect]
     Indication: HORMONE REPLACEMENT THERAPY
     Dosage: 1 TABLET, QD, ORAL
     Route: 048
     Dates: start: 20040101, end: 20040201

REACTIONS (3)
  - OPTIC ISCHAEMIC NEUROPATHY [None]
  - UTERINE HAEMORRHAGE [None]
  - VISION BLURRED [None]
